FAERS Safety Report 10110493 (Version 1)
Quarter: 2014Q2

REPORT INFORMATION
  Report Type: Spontaneous
  Country: US (occurrence: US)
  Receive Date: 20140425
  Receipt Date: 20140425
  Transmission Date: 20141212
  Serious: Yes (Hospitalization)
  Sender: FDA-Public Use
  Company Number: US-JNJFOC-20140413940

PATIENT
  Age: 54 Year
  Sex: Female
  Weight: 100.7 kg

DRUGS (4)
  1. INVOKANA [Suspect]
     Indication: TYPE 2 DIABETES MELLITUS
     Route: 048
     Dates: start: 2013
  2. LIPITOR [Concomitant]
     Indication: BLOOD CHOLESTEROL
     Route: 048
  3. CITALOPRAM [Concomitant]
     Indication: ANTIDEPRESSANT THERAPY
     Route: 048
     Dates: start: 2011
  4. FLONASE [Concomitant]
     Indication: MULTIPLE ALLERGIES
     Dates: start: 2010

REACTIONS (3)
  - Obesity surgery [Unknown]
  - Weight decreased [Not Recovered/Not Resolved]
  - Glycosylated haemoglobin increased [Unknown]
